FAERS Safety Report 5355231-3 (Version None)
Quarter: 2007Q2

REPORT INFORMATION
  Report Type: 
  Country: None (occurrence: None)
  Receive Date: 20070611
  Receipt Date: 20070601
  Transmission Date: 20071010
  Serious: Yes (Hospitalization)
  Sender: FDA-Public Use
  Company Number: 2007BI009988

PATIENT
  Age: 59 Year
  Sex: Female

DRUGS (8)
  1. AVONEX [Suspect]
     Indication: MULTIPLE SCLEROSIS
     Dosage: 30 UG; QW; IM
     Route: 030
     Dates: start: 20010323, end: 20030901
  2. AVONEX [Suspect]
     Indication: MULTIPLE SCLEROSIS
     Dosage: 30 UG; QW; IM
     Route: 030
     Dates: start: 20030901
  3. MESTINON [Concomitant]
  4. SYNTHROID [Concomitant]
  5. INSULIN [Concomitant]
  6. VYTORIN [Concomitant]
  7. SKELAXIN [Concomitant]
  8. LORTAB [Concomitant]

REACTIONS (2)
  - EYELID PTOSIS [None]
  - MYASTHENIA GRAVIS [None]
